FAERS Safety Report 5578441-9 (Version None)
Quarter: 2007Q4

REPORT INFORMATION
  Report Type: 
  Country: None (occurrence: None)
  Receive Date: 20071227
  Receipt Date: 20071218
  Transmission Date: 20080405
  Serious: Yes (Hospitalization)
  Sender: FDA-Public Use
  Company Number: JPI-P-002704

PATIENT
  Age: 27 Year
  Sex: Female

DRUGS (2)
  1. XYREM [Suspect]
     Indication: NARCOLEPSY
     Dosage: ORAL
     Route: 048
  2. MODAFINIL [Suspect]
     Indication: NARCOLEPSY
     Dosage: 200 MG (200 MG,1 IN 1 D),ORAL
     Route: 048

REACTIONS (2)
  - MANIA [None]
  - PARANOIA [None]
